FAERS Safety Report 13108481 (Version 1)
Quarter: 2017Q1

REPORT INFORMATION
  Report Type: Spontaneous
  Country: US (occurrence: US)
  Receive Date: 20170111
  Receipt Date: 20170111
  Transmission Date: 20170428
  Serious: Yes (Hospitalization)
  Sender: FDA-Public Use
  Company Number: None

PATIENT
  Age: 33 Year
  Sex: Female
  Weight: 85.5 kg

DRUGS (7)
  1. MAGNESIUM [Concomitant]
     Active Substance: MAGNESIUM
  2. METFORMIN [Concomitant]
     Active Substance: METFORMIN HYDROCHLORIDE
  3. TURMERIC [Concomitant]
     Active Substance: TURMERIC
  4. VITAMIN D [Concomitant]
     Active Substance: CHOLECALCIFEROL
  5. VITAMIN B [Concomitant]
     Active Substance: VITAMIN B
  6. BIRTH CONTROL [Concomitant]
     Active Substance: UNSPECIFIED INGREDIENT
  7. APIXIBAN [Suspect]
     Active Substance: APIXABAN
     Indication: DEEP VEIN THROMBOSIS
     Dosage: ?          QUANTITY:1 CAPSULE(S);?
     Route: 048
     Dates: start: 20161024

REACTIONS (4)
  - Autoimmune disorder [None]
  - Cervicogenic headache [None]
  - Migraine [None]
  - Muscle spasms [None]

NARRATIVE: CASE EVENT DATE: 20161110
